FAERS Safety Report 9140106 (Version 1)
Quarter: 2013Q1

REPORT INFORMATION
  Report Type: Spontaneous
  Country: KR (occurrence: KR)
  Receive Date: 20130305
  Receipt Date: 20130305
  Transmission Date: 20140127
  Serious: Yes (Life-Threatening)
  Sender: FDA-Public Use
  Company Number: KR-SANOFI-AVENTIS-2013SA018977

PATIENT
  Sex: Male

DRUGS (1)
  1. TRENTAL [Suspect]
     Indication: DEMENTIA
     Route: 048

REACTIONS (3)
  - Respiratory distress [Recovered/Resolved]
  - Abdominal distension [Recovered/Resolved]
  - Diarrhoea [Recovered/Resolved]
